FAERS Safety Report 5515431-6 (Version None)
Quarter: 2007Q4

REPORT INFORMATION
  Report Type: 
  Country: None (occurrence: None)
  Receive Date: 20071113
  Receipt Date: 20070214
  Transmission Date: 20080405
  Serious: No
  Sender: FDA-Public Use
  Company Number: A0639566A

PATIENT
  Age: 55 Year
  Sex: Male

DRUGS (3)
  1. COREG [Suspect]
     Dosage: 25MG TWICE PER DAY
     Route: 048
     Dates: start: 20061124
  2. POTASSIUM CHLORIDE [Concomitant]
  3. LASIX [Concomitant]

REACTIONS (3)
  - INFLUENZA LIKE ILLNESS [None]
  - THERAPEUTIC RESPONSE UNEXPECTED [None]
  - VISUAL DISTURBANCE [None]
